FAERS Safety Report 18775776 (Version 3)
Quarter: 2021Q2

REPORT INFORMATION
  Report Type: Other
  Country: NL (occurrence: NL)
  Receive Date: 20210122
  Receipt Date: 20210505
  Transmission Date: 20210717
  Serious: Yes (Other)
  Sender: FDA-Public Use
  Company Number: NL-ASPP-GLO2020NL012711

PATIENT

DRUGS (10)
  1. NINLARO [Suspect]
     Active Substance: IXAZOMIB CITRATE
     Indication: PLASMA CELL MYELOMA
     Dosage: 9 MONTHLY CYCLES OF IXAZOMIB (ON DAYS 1, 8, AND 15 OF A 28?DAY CYCLE)
     Route: 048
  2. ALBUMIN [Suspect]
     Active Substance: ALBUMIN HUMAN
     Indication: HYPERVISCOSITY SYNDROME
     Dosage: UNK
     Route: 065
  3. DEXAMETHASONE. [Suspect]
     Active Substance: DEXAMETHASONE
     Indication: HYPERVISCOSITY SYNDROME
     Dosage: UNK
     Route: 065
  4. THALIDOMIDE [Suspect]
     Active Substance: THALIDOMIDE
     Indication: HYPERVISCOSITY SYNDROME
     Dosage: UNK
     Route: 065
  5. NINLARO [Suspect]
     Active Substance: IXAZOMIB CITRATE
     Indication: HYPERVISCOSITY SYNDROME
     Dosage: 4 MG
     Route: 065
  6. DEXAMETHASONE. [Suspect]
     Active Substance: DEXAMETHASONE
     Indication: PLASMA CELL MYELOMA
     Dosage: 40 MG, 1 DOSE WEEKLY
     Route: 065
  7. THALIDOMIDE [Suspect]
     Active Substance: THALIDOMIDE
     Indication: PLASMA CELL MYELOMA
     Dosage: 100 MG (ON DAYS 1?21 OF A 28?DAY CYCLE)
     Route: 065
  8. SALINE [Suspect]
     Active Substance: SODIUM CHLORIDE
     Indication: PLASMA CELL MYELOMA
     Dosage: 5% ALBUMIN AND 0.9% SALINE WITH A PRESCRIBED VOLUME OF 50 TO 60 ML/KG BODY WEIGHT OF PLASMA REMOVAL
     Route: 065
  9. ALBUMIN [Suspect]
     Active Substance: ALBUMIN HUMAN
     Indication: PLASMA CELL MYELOMA
     Dosage: 5% ALBUMIN AND 0.9% SALINE WITH A PRESCRIBED VOLUME OF 50 TO 60 ML/KG BODY WEIGHT OF PLASMA REMOVAL
     Route: 065
  10. SALINE [Suspect]
     Active Substance: SODIUM CHLORIDE
     Indication: HYPERVISCOSITY SYNDROME
     Dosage: UNK
     Route: 065

REACTIONS (3)
  - Polyneuropathy [Unknown]
  - Off label use [Unknown]
  - Nausea [Unknown]
